FAERS Safety Report 8971336 (Version 1)
Quarter: 2012Q4

REPORT INFORMATION
  Report Type: 
  Country: FR (occurrence: FR)
  Receive Date: 20121218
  Receipt Date: 20121218
  Transmission Date: 20130627
  Serious: Yes (Other)
  Sender: FDA-Public Use
  Company Number: FR-JNJFOC-20121205936

PATIENT
  Age: 31 Year
  Sex: Female
  Weight: 58 kg

DRUGS (7)
  1. REMICADE [Suspect]
     Indication: CROHN^S DISEASE
     Dosage: third infusion
     Route: 042
     Dates: start: 20091119
  2. REMICADE [Suspect]
     Indication: CROHN^S DISEASE
     Dosage: second infusion of infliximab
     Route: 042
     Dates: start: 20091022
  3. REMICADE [Suspect]
     Indication: CROHN^S DISEASE
     Dosage: 1st infusion of infliximab
     Route: 042
     Dates: start: 20091007
  4. REMICADE [Suspect]
     Indication: CROHN^S DISEASE
     Dosage: last infusion
     Route: 042
     Dates: start: 20100510
  5. HYDROCORTISONE [Concomitant]
     Indication: PREMEDICATION
  6. TRINORDIOL [Concomitant]
     Indication: ORAL CONTRACEPTION
     Route: 048
     Dates: start: 2005
  7. INEXIUM [Concomitant]
     Indication: CROHN^S DISEASE
     Route: 048
     Dates: start: 2000, end: 20120701

REACTIONS (4)
  - Hepatocellular injury [Unknown]
  - Asthenia [Unknown]
  - Dermatitis psoriasiform [Unknown]
  - Arthralgia [Unknown]
